FAERS Safety Report 15209471 (Version 1)
Quarter: 2018Q3

REPORT INFORMATION
  Report Type: Report from Study
  Country: DE (occurrence: DE)
  Receive Date: 20180727
  Receipt Date: 20180727
  Transmission Date: 20181010
  Serious: Yes (Death)
  Sender: FDA-Public Use
  Company Number: DE-ASTRAZENECA-2018SE95870

PATIENT
  Age: 74 Year
  Sex: Female
  Weight: 88 kg

DRUGS (10)
  1. TIM?OPHTAL [Concomitant]
     Active Substance: TIMOLOL MALEATE
     Indication: CATARACT
     Dates: start: 20160711
  2. METOCLOPRAMIDE HYDROCHLORIDE. [Concomitant]
     Active Substance: METOCLOPRAMIDE HYDROCHLORIDE
     Indication: DIARRHOEA
     Dates: start: 20180614
  3. PALBOCICLIB [Suspect]
     Active Substance: PALBOCICLIB
     Indication: BREAST CANCER METASTATIC
     Route: 048
     Dates: start: 20171103, end: 20180614
  4. VIGANTOL OIL [Concomitant]
     Indication: PROPHYLAXIS
     Dates: start: 20160711
  5. FASLODEX [Suspect]
     Active Substance: FULVESTRANT
     Indication: BREAST CANCER METASTATIC
     Dosage: ONCE MONTHLY EXCEPT CYCLE 1: DAY 1, 15, 29
     Route: 030
     Dates: start: 20171103, end: 20180614
  6. XGEVA [Concomitant]
     Active Substance: DENOSUMAB
     Dates: start: 20170119
  7. L THYROXIN HENNING [Concomitant]
     Active Substance: LEVOTHYROXINE SODIUM
     Dates: start: 20180418
  8. PANTOPRAZOLE SODIUM. [Concomitant]
     Active Substance: PANTOPRAZOLE SODIUM
     Dates: start: 20180614
  9. METOCLOPRAMIDE HYDROCHLORIDE. [Concomitant]
     Active Substance: METOCLOPRAMIDE HYDROCHLORIDE
     Indication: VOMITING
     Dates: start: 20180614
  10. METOCLOPRAMIDE HYDROCHLORIDE. [Concomitant]
     Active Substance: METOCLOPRAMIDE HYDROCHLORIDE
     Indication: NAUSEA
     Dates: start: 20180614

REACTIONS (1)
  - Breast cancer [Fatal]

NARRATIVE: CASE EVENT DATE: 20180621
